FAERS Safety Report 15748370 (Version 3)
Quarter: 2020Q2

REPORT INFORMATION
  Report Type: Spontaneous
  Country: JP (occurrence: JP)
  Receive Date: 20181221
  Receipt Date: 20200624
  Transmission Date: 20200713
  Serious: Yes (Other)
  Sender: FDA-Public Use
  Company Number: JP-VIIV HEALTHCARE LIMITED-JP2018JPN227884

PATIENT
  Sex: Female
  Weight: 1.25 kg

DRUGS (15)
  1. EPIVIR [Suspect]
     Active Substance: LAMIVUDINE
     Dosage: 4 MG/KG/12H
     Route: 048
  2. ZIDOVUDINE. [Suspect]
     Active Substance: ZIDOVUDINE
     Dosage: 3 MG/KG
  3. ZIDOVUDINE. [Suspect]
     Active Substance: ZIDOVUDINE
     Dosage: 12 MG/KG/12H
  4. ZIDOVUDINE. [Suspect]
     Active Substance: ZIDOVUDINE
     Indication: PROPHYLAXIS AGAINST HIV INFECTION
     Dosage: 2 MG/KG/12H
     Route: 048
  5. ZIAGEN [Suspect]
     Active Substance: ABACAVIR SULFATE
     Indication: HIV INFECTION
     Dosage: 8 MG/KG/12H
     Route: 048
  6. NEVIRAPINE. [Concomitant]
     Active Substance: NEVIRAPINE
     Indication: HIV INFECTION
     Dosage: 6 MG/KG/12H
  7. ZIDOVUDINE. [Suspect]
     Active Substance: ZIDOVUDINE
     Indication: HIV INFECTION
     Dosage: UNK
     Route: 064
  8. PYRIMETHAMINE [Suspect]
     Active Substance: PYRIMETHAMINE
     Indication: CONGENITAL TOXOPLASMOSIS
     Dosage: 2 MG/KG, 1D
     Route: 065
  9. PYRIMETHAMINE [Suspect]
     Active Substance: PYRIMETHAMINE
     Dosage: 1 MG/KG, 1D
     Route: 065
  10. LEUCOVORIN. [Concomitant]
     Active Substance: LEUCOVORIN
     Indication: CONGENITAL TOXOPLASMOSIS
     Dosage: 5 MG, 3 TIMES WEEKLY
  11. EPIVIR [Suspect]
     Active Substance: LAMIVUDINE
     Indication: HIV INFECTION
     Dosage: 2 MG/KG/12H
     Route: 048
  12. SULFADIAZINE. [Suspect]
     Active Substance: SULFADIAZINE
     Indication: CONGENITAL TOXOPLASMOSIS
     Dosage: 50 MG/KG/12H
     Route: 065
  13. CLINDAMYCIN. [Concomitant]
     Active Substance: CLINDAMYCIN
     Indication: CONGENITAL TOXOPLASMOSIS
     Dosage: 7.5 MG/KG/6H
  14. PYRIMETHAMINE [Suspect]
     Active Substance: PYRIMETHAMINE
     Dosage: 1 MG/KG
     Route: 065
  15. LEUCOVORIN. [Concomitant]
     Active Substance: LEUCOVORIN
     Dosage: 10 MG/KG, 3 TIMES WEEKLY

REACTIONS (7)
  - Foetal exposure during pregnancy [Unknown]
  - Blood HIV RNA increased [Recovering/Resolving]
  - Anaemia [Recovered/Resolved]
  - Neutrophil count decreased [Recovering/Resolving]
  - Jaundice neonatal [Unknown]
  - Anaemia neonatal [Recovered/Resolved]
  - Product use issue [Unknown]
